FAERS Safety Report 6596087-0 (Version None)
Quarter: 2010Q1

REPORT INFORMATION
  Report Type: 
  Country: None (occurrence: None)
  Receive Date: 20100222
  Receipt Date: 20100222
  Transmission Date: 20100710
  Serious: No
  Sender: FDA-Public Use
  Company Number: None

PATIENT
  Sex: Male
  Weight: 81.6475 kg

DRUGS (1)
  1. AMIODARONE HCL [Suspect]
     Dosage: 2 TABS 200 MG TWICE DAILY
     Dates: start: 20091228, end: 20100106

REACTIONS (4)
  - COUGH [None]
  - HEART RATE INCREASED [None]
  - HEART RATE IRREGULAR [None]
  - VOMITING [None]
